FAERS Safety Report 24354472 (Version 1)
Quarter: 2024Q3

REPORT INFORMATION
  Report Type: Spontaneous
  Country: US (occurrence: US)
  Receive Date: 20240923
  Receipt Date: 20240923
  Transmission Date: 20241016
  Serious: No
  Sender: SANDOZ
  Company Number: US-SANDOZ-SDZ2024US057072

PATIENT

DRUGS (1)
  1. ADALIMUMAB [Suspect]
     Active Substance: ADALIMUMAB
     Indication: Product used for unknown indication
     Dosage: 40MG/0.4ML PEN
     Route: 065

REACTIONS (4)
  - Abdominal pain [Unknown]
  - Product substitution issue [Unknown]
  - Device leakage [Unknown]
  - Device delivery system issue [Unknown]
